FAERS Safety Report 20136162 (Version 2)
Quarter: 2021Q4

REPORT INFORMATION
  Report Type: Other
  Country: CN (occurrence: CN)
  Receive Date: 20211201
  Receipt Date: 20211209
  Transmission Date: 20220303
  Serious: Yes (Other)
  Sender: FDA-Public Use
  Company Number: CN-BoehringerIngelheim-2021-BI-139262

PATIENT

DRUGS (5)
  1. ALTEPLASE [Suspect]
     Active Substance: ALTEPLASE
     Indication: Thrombolysis
     Dosage: ROUTE: INTRAVENOUS THROMBOLYSIS?0.9MG/KG, NOT TO EXCEED 90MG, AT ONE TENTH OF THE TOTAL DOSE BY INTR
     Route: 040
  2. ALTEPLASE [Suspect]
     Active Substance: ALTEPLASE
     Dosage: REMAINING DOSE NEEDS TO BE GIVEN BY INTRAVENOUS DRIP WITHIN 60MIN
     Route: 042
  3. TIROFIBAN [Concomitant]
     Active Substance: TIROFIBAN
     Indication: Cerebral infarction
     Dosage: ROUTE: INFUSION?INTRAVENOUS BOLUS INJECTION AT A RATE OF 5 MICROGRAM/KG FOR 3MIN
     Route: 042
  4. TIROFIBAN [Concomitant]
     Active Substance: TIROFIBAN
     Indication: Thrombolysis
     Route: 042
  5. ASPIRIN [Concomitant]
     Active Substance: ASPIRIN
     Indication: Product used for unknown indication
     Dosage: 0.15G/TIME, QD
     Route: 048

REACTIONS (3)
  - Cerebral haemorrhage [Unknown]
  - Cerebral infarction [Unknown]
  - Off label use [Unknown]
